FAERS Safety Report 25866708 (Version 1)
Quarter: 2025Q3

REPORT INFORMATION
  Report Type: Report from Study
  Country: US (occurrence: US)
  Receive Date: 20250930
  Receipt Date: 20250930
  Transmission Date: 20251020
  Serious: Yes (Other)
  Sender: ALEXION PHARMACEUTICALS
  Company Number: US-ASTRAZENECA-202509USA023502US

PATIENT
  Age: 89 Year
  Sex: Female

DRUGS (1)
  1. STRENSIQ [Suspect]
     Active Substance: ASFOTASE ALFA
     Indication: Phosphorus metabolism disorder
     Dosage: 1 MILLIGRAM/KILOGRAM, TIW (80 MG SOLUTION VIAL), ROTATE INJECTION SITES
     Route: 065

REACTIONS (2)
  - Neuropathy peripheral [Unknown]
  - Bone pain [Unknown]
